FAERS Safety Report 7094201-4 (Version None)
Quarter: 2010Q4

REPORT INFORMATION
  Report Type: 
  Country: None (occurrence: None)
  Receive Date: 20101110
  Receipt Date: 20101108
  Transmission Date: 20110411
  Serious: Yes (Hospitalization)
  Sender: FDA-Public Use
  Company Number: US-ELI_LILLY_AND_COMPANY-US201008007935

PATIENT
  Sex: Male
  Weight: 104 kg

DRUGS (6)
  1. EFFIENT [Suspect]
     Indication: ACUTE MYOCARDIAL INFARCTION
     Dosage: UNK, UNK
     Dates: start: 20100727
  2. ASPIRIN [Concomitant]
  3. METOPROLOL [Concomitant]
  4. LISINOPRIL [Concomitant]
  5. LIPITOR [Concomitant]
  6. ACTOPLUS MET [Concomitant]

REACTIONS (1)
  - ACUTE MYOCARDIAL INFARCTION [None]
